FAERS Safety Report 19365541 (Version 1)
Quarter: 2021Q2

REPORT INFORMATION
  Report Type: Spontaneous
  Country: US (occurrence: US)
  Receive Date: 20210603
  Receipt Date: 20210603
  Transmission Date: 20210717
  Serious: No
  Sender: FDA-Public Use
  Company Number: None

PATIENT
  Age: 60 Year
  Sex: Male

DRUGS (8)
  1. VITAMIN B COMPLEX [Concomitant]
     Active Substance: CYANOCOBALAMIN\DEXPANTHENOL\NIACINAMIDE\PYRIDOXINE HYDROCHLORIDE\RIBOFLAVIN 5^-PHOSPHATE SODIUM\THIAMINE HYDROCHLORIDE\VITAMIN B COMPLEX
  2. FLONASE [Concomitant]
     Active Substance: FLUTICASONE PROPIONATE
  3. NO DRUG NAME [Concomitant]
  4. HUMIRA [Suspect]
     Active Substance: ADALIMUMAB
  5. CALTRATE [Concomitant]
     Active Substance: CALCIUM CARBONATE
  6. DULOXETINE. [Concomitant]
     Active Substance: DULOXETINE
  7. TYLENOL [Concomitant]
     Active Substance: ACETAMINOPHEN
  8. DILAUDID [Concomitant]
     Active Substance: HYDROMORPHONE HYDROCHLORIDE

REACTIONS (4)
  - Nausea [None]
  - Dyspnoea [None]
  - Rash [None]
  - Pruritus [None]

NARRATIVE: CASE EVENT DATE: 20210530
